FAERS Safety Report 18968342 (Version 1)
Quarter: 2021Q1

REPORT INFORMATION
  Report Type: Spontaneous
  Country: US (occurrence: US)
  Receive Date: 20210304
  Receipt Date: 20210304
  Transmission Date: 20210420
  Serious: Yes (Other)
  Sender: FDA-Public Use
  Company Number: US-PFIZER INC-2016280403

PATIENT
  Age: 72 Year
  Sex: Male

DRUGS (6)
  1. NORCO [Concomitant]
     Active Substance: ACETAMINOPHEN\HYDROCODONE BITARTRATE
     Dosage: UNK, AS NEEDED (10?325MG 1 TAB EVERY 4?6 HOURS PRN)
     Dates: start: 20160519
  2. STOOL SOFTENER (DOCUSATE) [Concomitant]
     Active Substance: DOCUSATE
     Dosage: 100 MG
     Dates: start: 20130227
  3. LYRICA [Suspect]
     Active Substance: PREGABALIN
     Dosage: 150 MG, 2X/DAY
     Route: 048
     Dates: start: 20160523
  4. PREDNISONE. [Concomitant]
     Active Substance: PREDNISONE
     Dosage: UNK MG, DAILY (10MG 1?2 TAB DAILY)
     Dates: start: 20160307
  5. LEVOTHYROXINE SODIUM. [Concomitant]
     Active Substance: LEVOTHYROXINE SODIUM
     Dosage: 100 UG
     Dates: start: 20130227
  6. MS CONTIN [Concomitant]
     Active Substance: MORPHINE SULFATE
     Dosage: 60 MG, (1 TAB EVERY 8 HRS)
     Dates: start: 20160519

REACTIONS (3)
  - Limb injury [Unknown]
  - Pain in extremity [Unknown]
  - Haemorrhage [Unknown]
